FAERS Safety Report 6486547-5 (Version None)
Quarter: 2009Q4

REPORT INFORMATION
  Report Type: 
  Country: None (occurrence: None)
  Receive Date: 20091209
  Receipt Date: 20091209
  Transmission Date: 20100525
  Serious: Yes (Hospitalization)
  Sender: FDA-Public Use
  Company Number: None

PATIENT
  Age: 82 Year
  Weight: 75.1 kg

DRUGS (13)
  1. MELOXICAM [Suspect]
     Dosage: 15MG DAILY PO CHRONIC
     Route: 048
  2. ASPIRIN [Suspect]
     Indication: CORONARY ARTERY DISEASE
  3. ALEVE (CAPLET) [Suspect]
  4. METFORMIN HCL [Concomitant]
  5. VOLTAREN [Concomitant]
  6. HYDROCHLOROTHIAZIDE [Concomitant]
  7. DIOVAN [Concomitant]
  8. LOVAZA [Concomitant]
  9. TUMS [Concomitant]
  10. GABAPENTIN [Concomitant]
  11. GLIPIZIDE [Concomitant]
  12. M.V.I. [Concomitant]
  13. HYDROXYZINE [Concomitant]

REACTIONS (4)
  - ANAEMIA [None]
  - DECREASED APPETITE [None]
  - GASTRIC ULCER [None]
  - HYPONATRAEMIA [None]
